FAERS Safety Report 21370273 (Version 1)
Quarter: 2022Q3

REPORT INFORMATION
  Report Type: Report from Study
  Country: TR (occurrence: TR)
  Receive Date: 20220923
  Receipt Date: 20220923
  Transmission Date: 20221027
  Serious: Yes (Death, Other)
  Sender: FDA-Public Use
  Company Number: TR-NOVARTISPH-NVSC2022TR124556

PATIENT
  Age: 59 Year
  Sex: Female
  Weight: 43 kg

DRUGS (2)
  1. ALPELISIB [Suspect]
     Active Substance: ALPELISIB
     Indication: Breast cancer metastatic
     Dosage: 300 MG, QD
     Route: 048
     Dates: start: 20220414, end: 20220522
  2. METHYLPREDNISOLONE [Concomitant]
     Active Substance: METHYLPREDNISOLONE
     Indication: Product used for unknown indication
     Dosage: 1 MG PER KG
     Route: 065
     Dates: start: 20220525

REACTIONS (4)
  - Death [Fatal]
  - Rash [Unknown]
  - Pyrexia [Unknown]
  - Skin toxicity [Unknown]

NARRATIVE: CASE EVENT DATE: 20220522
